FAERS Safety Report 21031715 (Version 2)
Quarter: 2022Q3

REPORT INFORMATION
  Report Type: Spontaneous
  Country: US (occurrence: None)
  Receive Date: 20220701
  Receipt Date: 20220701
  Transmission Date: 20221027
  Serious: No
  Sender: FDA-Public Use
  Company Number: US-ROCHE-3005659

PATIENT
  Sex: Male
  Weight: 24.970 kg

DRUGS (10)
  1. ACTEMRA [Suspect]
     Active Substance: TOCILIZUMAB
     Indication: Juvenile idiopathic arthritis
     Route: 042
     Dates: start: 20191114, end: 2020
  2. ACTEMRA [Suspect]
     Active Substance: TOCILIZUMAB
     Indication: Juvenile idiopathic arthritis
     Route: 058
     Dates: start: 202003, end: 2021
  3. ACTEMRA [Suspect]
     Active Substance: TOCILIZUMAB
     Route: 058
     Dates: start: 2021, end: 202108
  4. ACTEMRA [Suspect]
     Active Substance: TOCILIZUMAB
     Indication: Juvenile idiopathic arthritis
     Route: 058
     Dates: start: 202108
  5. ACTEMRA [Suspect]
     Active Substance: TOCILIZUMAB
  6. BENADRYL [Concomitant]
     Active Substance: DIPHENHYDRAMINE HYDROCHLORIDE
     Indication: Premedication
     Dosage: GIVEN PRIOR TO ACTEMRA INJECTION
     Route: 048
     Dates: start: 2021
  7. BENADRYL [Concomitant]
     Active Substance: DIPHENHYDRAMINE HYDROCHLORIDE
     Dosage: GIVEN PRIOR TO ACTEMRA INJECTION + ONGOIN STATUS NO
     Route: 048
  8. BENADRYL [Concomitant]
     Active Substance: DIPHENHYDRAMINE HYDROCHLORIDE
     Dosage: PREMEDICATION BEFORE INFUSION + ONGOIN STATUS NO
     Route: 065
     Dates: start: 201911, end: 202003
  9. PREDNISONE [Concomitant]
     Active Substance: PREDNISONE
     Dosage: DOSE OF 7 ML (CONCENTRATION OF 15 MG/5 ML LIQUID) AS ORAL FOR 3 DAYS OF THERAPY
     Route: 048
     Dates: start: 20220116
  10. MOTRIN [Concomitant]
     Active Substance: IBUPROFEN

REACTIONS (10)
  - Mass [Recovered/Resolved]
  - Juvenile idiopathic arthritis [Not Recovered/Not Resolved]
  - Synovial cyst [Not Recovered/Not Resolved]
  - Arthritis [Unknown]
  - Off label use [Unknown]
  - Syringe issue [Unknown]
  - Device mechanical issue [Unknown]
  - Drug delivery system malfunction [Unknown]
  - Device defective [Unknown]
  - Intercepted product storage error [Unknown]

NARRATIVE: CASE EVENT DATE: 20200101
